FAERS Safety Report 19181334 (Version 1)
Quarter: 2021Q2

REPORT INFORMATION
  Report Type: Spontaneous
  Country: US (occurrence: US)
  Receive Date: 20210426
  Receipt Date: 20210426
  Transmission Date: 20210717
  Serious: Yes (Other)
  Sender: FDA-Public Use
  Company Number: US-MYLANLABS-2021M1024035

PATIENT

DRUGS (1)
  1. LEVOTHYROXINE SODIUM TABLETS, USP [Suspect]
     Active Substance: LEVOTHYROXINE SODIUM
     Indication: AUTOIMMUNE THYROIDITIS
     Dosage: UNK

REACTIONS (18)
  - Condition aggravated [Unknown]
  - Goitre [Unknown]
  - Palpitations [Unknown]
  - Blood pressure increased [Unknown]
  - Thyroxine increased [Unknown]
  - Dyspepsia [Unknown]
  - Trichorrhexis [Unknown]
  - Panic attack [Unknown]
  - Loss of consciousness [Unknown]
  - Pain [Unknown]
  - Tremor [Unknown]
  - Flatulence [Unknown]
  - Temperature intolerance [Recovered/Resolved]
  - Alopecia [Unknown]
  - Hot flush [Unknown]
  - Anxiety [Recovering/Resolving]
  - Heart rate increased [Unknown]
  - Feeling abnormal [Unknown]
